FAERS Safety Report 9299372 (Version 2)
Quarter: 2014Q1

REPORT INFORMATION
  Report Type: Spontaneous
  Country: US (occurrence: US)
  Receive Date: 20130520
  Receipt Date: 20140205
  Transmission Date: 20141002
  Serious: Yes (Hospitalization)
  Sender: FDA-Public Use
  Company Number: US-B.I. PHARMACEUTICALS,INC./RIDGEFIELD-2013-BI-13769BP

PATIENT
  Sex: Female
  Weight: 62.6 kg

DRUGS (12)
  1. PRADAXA [Suspect]
     Indication: ANTICOAGULANT THERAPY
     Dosage: 150 MG
     Route: 048
     Dates: start: 20110209, end: 20110706
  2. PRADAXA [Suspect]
     Indication: ATRIAL FIBRILLATION
  3. LISINOPRIL [Concomitant]
     Dosage: 20 MG
     Route: 048
  4. LASIX [Concomitant]
     Dosage: 20 MG
     Route: 048
  5. K-DUR [Concomitant]
     Dosage: 20 MEQ
     Route: 048
  6. ASPIRIN [Concomitant]
     Dosage: 81 MG
     Route: 048
  7. NORVASC [Concomitant]
     Dosage: 10 MG
     Route: 048
  8. HYDRALAZINE [Concomitant]
     Dosage: 75 MG
     Route: 048
  9. OMEPRAZOLE [Concomitant]
     Dosage: 20 MG
     Route: 048
  10. LOPRESSOR [Concomitant]
     Dosage: 25 MG
     Route: 048
  11. SPIRIVA [Concomitant]
     Dosage: 1 PUF
     Route: 048
  12. SIMVASTATIN [Concomitant]
     Dosage: 20 MG
     Route: 048

REACTIONS (2)
  - Gastrointestinal haemorrhage [Unknown]
  - Haemorrhagic anaemia [Unknown]
